FAERS Safety Report 22269862 (Version 1)
Quarter: 2023Q2

REPORT INFORMATION
  Report Type: Spontaneous
  Country: US (occurrence: None)
  Receive Date: 20230427
  Receipt Date: 20230427
  Transmission Date: 20230722
  Serious: Yes (unspecified)
  Sender: FDA-Public Use
  Company Number: None

PATIENT
  Age: 17 Year
  Sex: Female
  Weight: 96.7 kg

DRUGS (1)
  1. DUPIXENT [Suspect]
     Active Substance: DUPILUMAB
     Dosage: FREQUENCY : WEEKLY;?
     Route: 058
     Dates: start: 20221008, end: 20230308

REACTIONS (1)
  - Erythema nodosum [None]

NARRATIVE: CASE EVENT DATE: 20230308
